FAERS Safety Report 9736345 (Version 2)
Quarter: 2014Q1

REPORT INFORMATION
  Report Type: Spontaneous
  Country: RU (occurrence: RU)
  Receive Date: 20131206
  Receipt Date: 20140225
  Transmission Date: 20141002
  Serious: Yes (Hospitalization)
  Sender: FDA-Public Use
  Company Number: RU-ROCHE-1308321

PATIENT
  Sex: Male

DRUGS (2)
  1. XENICAL [Suspect]
     Indication: OVERWEIGHT
     Route: 048
     Dates: start: 2009, end: 2009
  2. XENICAL [Suspect]
     Route: 048
     Dates: start: 201311

REACTIONS (4)
  - Cerebrovascular accident [Recovered/Resolved]
  - Steatorrhoea [Recovered/Resolved]
  - Drug ineffective [Unknown]
  - Product counterfeit [Unknown]
